FAERS Safety Report 20700521 (Version 2)
Quarter: 2022Q2

REPORT INFORMATION
  Report Type: Report from Study
  Country: US (occurrence: US)
  Receive Date: 20220412
  Receipt Date: 20220419
  Transmission Date: 20220720
  Serious: Yes (Other)
  Sender: FDA-Public Use
  Company Number: US-TEVA-2022-US-2024646

PATIENT
  Age: 49 Year
  Sex: Female

DRUGS (1)
  1. COPAXONE [Suspect]
     Active Substance: GLATIRAMER ACETATE
     Dosage: FORM STRENGTH UNKNOWN
     Route: 065

REACTIONS (13)
  - Hemihypoaesthesia [Unknown]
  - Immediate post-injection reaction [Unknown]
  - Taste disorder [Unknown]
  - Burning sensation [Unknown]
  - Hypoaesthesia [Unknown]
  - Erythema [Unknown]
  - Blood pressure increased [Unknown]
  - Palpitations [Unknown]
  - Abdominal pain upper [Unknown]
  - Renal pain [Unknown]
  - Injection site discolouration [Unknown]
  - Injection site haemorrhage [Unknown]
  - Wrong technique in product usage process [Unknown]

NARRATIVE: CASE EVENT DATE: 20220101
